FAERS Safety Report 4320152-1 (Version None)
Quarter: 2004Q1

REPORT INFORMATION
  Report Type: 
  Country: None (occurrence: None)
  Receive Date: 20040317
  Receipt Date: 20040304
  Transmission Date: 20041129
  Serious: Yes (Hospitalization)
  Sender: FDA-Public Use
  Company Number: 2004015566

PATIENT
  Age: 13 Year
  Sex: Female

DRUGS (2)
  1. VFEND [Suspect]
     Indication: PNEUMONIA ASPERGILLUS
     Dosage: ORAL
     Route: 048
     Dates: end: 20040121
  2. ALL OTHER THERAPEUTIC PRODUCTS [Concomitant]

REACTIONS (5)
  - C-REACTIVE PROTEIN INCREASED [None]
  - EXTREMITY NECROSIS [None]
  - FUNGAL ENDOCARDITIS [None]
  - POOR PERIPHERAL CIRCULATION [None]
  - RAYNAUD'S PHENOMENON [None]
